FAERS Safety Report 19573893 (Version 1)
Quarter: 2021Q3

REPORT INFORMATION
  Report Type: Report from Study
  Country: CA (occurrence: CA)
  Receive Date: 20210718
  Receipt Date: 20210718
  Transmission Date: 20211014
  Serious: Yes (Death)
  Sender: FDA-Public Use
  Company Number: CA-HLS-202107922

PATIENT
  Age: 57 Year
  Sex: Male

DRUGS (1)
  1. CLOZARIL [Suspect]
     Active Substance: CLOZAPINE
     Indication: PRODUCT USED FOR UNKNOWN INDICATION
     Route: 048
     Dates: start: 20190603, end: 20210708

REACTIONS (1)
  - Death [Fatal]

NARRATIVE: CASE EVENT DATE: 20210708
